FAERS Safety Report 14912214 (Version 1)
Quarter: 2018Q2

REPORT INFORMATION
  Report Type: Spontaneous
  Country: FR (occurrence: FR)
  Receive Date: 20180518
  Receipt Date: 20180518
  Transmission Date: 20180711
  Serious: Yes (Other)
  Sender: FDA-Public Use
  Company Number: FR-MERCK KGAA-2048045

PATIENT
  Age: 44 Year
  Sex: Female

DRUGS (2)
  1. NOVOTHYROX [Suspect]
     Active Substance: LEVOTHYROXINE SODIUM
     Indication: PRODUCT USED FOR UNKNOWN INDICATION
     Dates: start: 201704, end: 20171002
  2. NOVOTHYROX [Suspect]
     Active Substance: LEVOTHYROXINE SODIUM
     Dates: start: 201704, end: 201709

REACTIONS (33)
  - Headache [None]
  - Pain [None]
  - Dyspepsia [None]
  - Mobility decreased [None]
  - Constipation [None]
  - Social avoidant behaviour [None]
  - Asthenia [None]
  - Gingival bleeding [None]
  - Depression [None]
  - Chest pain [None]
  - Insomnia [None]
  - Myalgia [None]
  - Feeling abnormal [None]
  - Dysstasia [None]
  - Musculoskeletal pain [None]
  - Alopecia [None]
  - Angina pectoris [None]
  - Arthralgia [Recovering/Resolving]
  - Nail discolouration [None]
  - Impaired driving ability [None]
  - Burnout syndrome [None]
  - Pain in extremity [None]
  - Anxiety [None]
  - Flatulence [None]
  - Abdominal pain upper [None]
  - Memory impairment [None]
  - Eczema [None]
  - Neck pain [None]
  - Hypertrichosis [None]
  - Weight increased [None]
  - Blood thyroid stimulating hormone decreased [Not Recovered/Not Resolved]
  - Mental fatigue [None]
  - Fatigue [Recovering/Resolving]

NARRATIVE: CASE EVENT DATE: 201704
